FAERS Safety Report 18293439 (Version 1)
Quarter: 2020Q3

REPORT INFORMATION
  Report Type: Other
  Country: US (occurrence: US)
  Receive Date: 20200921
  Receipt Date: 20200921
  Transmission Date: 20201103
  Serious: No
  Sender: FDA-Public Use
  Company Number: US-ACORDA-ACO_165534_2020

PATIENT
  Sex: Male

DRUGS (3)
  1. INBRIJA [Suspect]
     Active Substance: LEVODOPA
     Indication: PARKINSON^S DISEASE
  2. INBRIJA [Suspect]
     Active Substance: LEVODOPA
     Indication: ON AND OFF PHENOMENON
     Dosage: 2 CAPSULES, AS NEEDED (UP TO 5X PER DAY)
     Dates: start: 20200709
  3. CARBIDOPA LEVODOPA [Concomitant]
     Active Substance: CARBIDOPA\LEVODOPA
     Indication: PRODUCT USED FOR UNKNOWN INDICATION
     Dosage: 25/100MG, 1 TABLET, FIVE TIMES A DAY AT 3 HOUR INTERVALS
     Route: 065

REACTIONS (4)
  - Cough [Unknown]
  - Device use issue [Unknown]
  - Incorrect dose administered by device [Unknown]
  - Drug ineffective [Unknown]
